FAERS Safety Report 5981401-7 (Version None)
Quarter: 2008Q4

REPORT INFORMATION
  Report Type: 
  Country: None (occurrence: None)
  Receive Date: 20081205
  Receipt Date: 20080222
  Transmission Date: 20090506
  Serious: No
  Sender: FDA-Public Use
  Company Number: US-AMGEN-KDL262077

PATIENT
  Sex: Female
  Weight: 73.1 kg

DRUGS (5)
  1. ENBREL [Suspect]
     Indication: PSORIATIC ARTHROPATHY
     Route: 058
     Dates: start: 20080103
  2. SYNTHROID [Concomitant]
  3. EFFEXOR [Concomitant]
  4. DIPROLENE [Concomitant]
     Route: 061
  5. RELAFEN [Concomitant]

REACTIONS (3)
  - MALAISE [None]
  - SINUSITIS [None]
  - UPPER RESPIRATORY TRACT INFECTION [None]
